FAERS Safety Report 9729518 (Version 1)
Quarter: 2013Q4

REPORT INFORMATION
  Report Type: Spontaneous
  Country: US (occurrence: US)
  Receive Date: 20131204
  Receipt Date: 20131204
  Transmission Date: 20140711
  Serious: No
  Sender: FDA-Public Use
  Company Number: US-GILEAD-2009-0022078

PATIENT
  Sex: Female
  Weight: 64.41 kg

DRUGS (11)
  1. LETAIRIS [Suspect]
     Indication: PULMONARY ARTERIAL HYPERTENSION
     Route: 048
     Dates: start: 20090505
  2. NORVASC [Concomitant]
  3. HYDROXYCHLOROQUINE [Concomitant]
  4. ASPIRIN [Concomitant]
  5. GABAPENTIN [Concomitant]
  6. CELEBREX [Concomitant]
  7. CIPRO [Concomitant]
  8. OMEPRAZOLE [Concomitant]
  9. PREMARIN [Concomitant]
  10. TYLENOL [Concomitant]
  11. A-Z MULTIVITAMIN [Concomitant]

REACTIONS (1)
  - Local swelling [Unknown]
